FAERS Safety Report 9922359 (Version 1)
Quarter: 2014Q1

REPORT INFORMATION
  Report Type: Spontaneous
  Country: US (occurrence: None)
  Receive Date: 20140224
  Receipt Date: 20140224
  Transmission Date: 20141002
  Serious: Yes (Life-Threatening, Hospitalization)
  Sender: FDA-Public Use
  Company Number: None

PATIENT
  Age: 74 Year
  Sex: Male
  Weight: 72.58 kg

DRUGS (6)
  1. ACTOS [Suspect]
     Indication: TYPE 2 DIABETES MELLITUS
     Dosage: 1   1 PER DAY  BY MOUTH
     Route: 048
     Dates: start: 20051005, end: 20100715
  2. METFORMIN [Concomitant]
  3. LOSARTAN [Concomitant]
  4. SIMVASTATIN [Concomitant]
  5. FISH OIL [Concomitant]
  6. MULTIVITAMIN [Concomitant]

REACTIONS (1)
  - Bladder cancer [None]
